FAERS Safety Report 6817024-7 (Version None)
Quarter: 2010Q3

REPORT INFORMATION
  Report Type: 
  Country: None (occurrence: None)
  Receive Date: 20100706
  Receipt Date: 20100622
  Transmission Date: 20110219
  Serious: Yes (Death)
  Sender: FDA-Public Use
  Company Number: DE-JNJFOC-20100607876

PATIENT

DRUGS (3)
  1. REMICADE [Suspect]
     Indication: INTESTINE TRANSPLANT REJECTION
     Route: 042
  2. REMICADE [Suspect]
     Indication: COMPLICATIONS OF INTESTINAL TRANSPLANT
     Route: 042
  3. ORTHOCLONE OKT3 [Suspect]
     Indication: INTESTINAL TRANSPLANT

REACTIONS (2)
  - DRUG INEFFECTIVE FOR UNAPPROVED INDICATION [None]
  - INTESTINE TRANSPLANT REJECTION [None]
